FAERS Safety Report 6656259-3 (Version None)
Quarter: 2010Q1

REPORT INFORMATION
  Report Type: 
  Country: None (occurrence: None)
  Receive Date: 20100329
  Receipt Date: 20100325
  Transmission Date: 20100710
  Serious: Yes (Other)
  Sender: FDA-Public Use
  Company Number: FR-ROXANE LABORATORIES, INC.-2010-RO-00332RO

PATIENT
  Age: 36 Year
  Sex: Female

DRUGS (2)
  1. BUPRENORPHINE HYDROCHLORIDE [Suspect]
     Indication: DRUG DEPENDENCE
     Route: 048
  2. COCAINE HCL TOPICAL SOLUTION, 4% [Suspect]
     Indication: DEPENDENCE

REACTIONS (3)
  - BONE INFARCTION [None]
  - DRUG ABUSE [None]
  - DRUG DEPENDENCE [None]
